FAERS Safety Report 6388987-1 (Version None)
Quarter: 2009Q4

REPORT INFORMATION
  Report Type: 
  Country: None (occurrence: None)
  Receive Date: 20091001
  Receipt Date: 20090922
  Transmission Date: 20100525
  Serious: Yes (Other)
  Sender: FDA-Public Use
  Company Number: ADR27612009

PATIENT
  Age: 47 Year
  Sex: Female

DRUGS (14)
  1. RAMIPRIL [Suspect]
     Indication: BLOOD PRESSURE MANAGEMENT
     Dosage: 5 MG
  2. VALOID (CYCLIZINE) [Concomitant]
  3. AMITRIPTYLINE [Concomitant]
  4. CALCIUM ACETATE [Concomitant]
  5. DIAZEPAM [Concomitant]
  6. FEMULEN [Concomitant]
  7. FUROSEMIDE [Concomitant]
  8. LANSOPRAZOLE [Concomitant]
  9. OXYCONTIN [Concomitant]
  10. PARACETAMOL [Concomitant]
  11. PREGABALIN [Concomitant]
  12. QUININE SULPHATE [Concomitant]
  13. ALBUTEROL [Concomitant]
  14. SEVELAMER [Concomitant]

REACTIONS (7)
  - ERYTHEMA [None]
  - FLUSHING [None]
  - HYPOTENSION [None]
  - MALAISE [None]
  - MUSCLE SPASMS [None]
  - MUSCLE TWITCHING [None]
  - NAUSEA [None]
